FAERS Safety Report 5969376-8 (Version None)
Quarter: 2008Q4

REPORT INFORMATION
  Report Type: 
  Country: None (occurrence: None)
  Receive Date: 20081126
  Receipt Date: 20081121
  Transmission Date: 20090506
  Serious: Yes (Other)
  Sender: FDA-Public Use
  Company Number: US-WATSON-2008-06921

PATIENT
  Age: 17 Month
  Sex: Female
  Weight: 9 kg

DRUGS (1)
  1. LIDOCAINE HYDROCHLORIDE (WATSON LABORATORIES) [Suspect]
     Indication: ENDOTRACHEAL INTUBATION
     Dosage: 1.5 MG/KG, SINGLE
     Route: 042

REACTIONS (1)
  - BRONCHOSPASM [None]
